FAERS Safety Report 16749332 (Version 1)
Quarter: 2019Q3

REPORT INFORMATION
  Report Type: Spontaneous
  Country: IL (occurrence: IL)
  Receive Date: 20190828
  Receipt Date: 20190828
  Transmission Date: 20191005
  Serious: Yes (Other)
  Sender: FDA-Public Use
  Company Number: IL-PFIZER INC-2019369287

PATIENT

DRUGS (1)
  1. CONTROLOC [Suspect]
     Active Substance: PANTOPRAZOLE SODIUM
     Indication: ABDOMINAL PAIN UPPER
     Dosage: 40 MG, UNK
     Route: 042

REACTIONS (6)
  - Pruritus [Unknown]
  - Blood pressure decreased [Unknown]
  - Anaphylactic reaction [Unknown]
  - Vomiting [Unknown]
  - Hyperhidrosis [Unknown]
  - Stevens-Johnson syndrome [Unknown]
